FAERS Safety Report 9466765 (Version 4)
Quarter: 2014Q1

REPORT INFORMATION
  Report Type: Spontaneous
  Country: JP (occurrence: JP)
  Receive Date: 20130820
  Receipt Date: 20140127
  Transmission Date: 20141002
  Serious: Yes (Hospitalization)
  Sender: FDA-Public Use
  Company Number: PHHY2013JP087958

PATIENT
  Sex: Male

DRUGS (1)
  1. CARBAMAZEPINE [Suspect]
     Indication: EPILEPSY
     Dosage: 300 MG/DAY
     Route: 048

REACTIONS (8)
  - Toxicity to various agents [Recovered/Resolved]
  - Tonic convulsion [Recovered/Resolved]
  - Muscle rigidity [Recovered/Resolved]
  - Altered state of consciousness [Recovered/Resolved]
  - Somnolence [Recovered/Resolved]
  - Drug level increased [Recovered/Resolved]
  - Convulsion [Recovered/Resolved]
  - Overdose [Unknown]
